FAERS Safety Report 12678826 (Version 1)
Quarter: 2016Q3

REPORT INFORMATION
  Report Type: Spontaneous
  Country: US (occurrence: US)
  Receive Date: 20160824
  Receipt Date: 20160824
  Transmission Date: 20161109
  Serious: No
  Sender: FDA-Public Use
  Company Number: US-ASTRAZENECA-2016SE77037

PATIENT
  Sex: Female
  Weight: 113.4 kg

DRUGS (7)
  1. BYDUREON [Suspect]
     Active Substance: EXENATIDE
     Indication: DIABETES MELLITUS
     Route: 058
     Dates: start: 20160612
  2. SIMVASTATIN. [Concomitant]
     Active Substance: SIMVASTATIN
     Route: 048
  3. VITAMINS [Concomitant]
     Active Substance: VITAMINS
     Route: 048
  4. TOUJEO [Concomitant]
     Active Substance: INSULIN GLARGINE
     Dosage: 20 UNITS SQ EVERY HS
     Route: 058
  5. CARVEDILOL. [Concomitant]
     Active Substance: CARVEDILOL
     Indication: HYPERTENSION
     Dosage: 25.0MG UNKNOWN
     Route: 048
  6. OMEPRAZOLE OTC [Suspect]
     Active Substance: OMEPRAZOLE
     Indication: GASTROOESOPHAGEAL REFLUX DISEASE
     Dosage: 20.0MG UNKNOWN
     Route: 048
  7. LOSARTEN [Concomitant]
     Active Substance: LOSARTAN
     Dosage: 100.0MG UNKNOWN
     Route: 048

REACTIONS (7)
  - Pruritus [Not Recovered/Not Resolved]
  - Malaise [Unknown]
  - Blood cholesterol increased [Unknown]
  - Device defective [Unknown]
  - Diabetes mellitus [Unknown]
  - Urticaria [Unknown]
  - Erythema [Recovered/Resolved]
